FAERS Safety Report 10188805 (Version 1)
Quarter: 2014Q2

REPORT INFORMATION
  Report Type: Spontaneous
  Country: US (occurrence: US)
  Receive Date: 20140522
  Receipt Date: 20140522
  Transmission Date: 20141212
  Serious: No
  Sender: FDA-Public Use
  Company Number: US-SA-2014SA023885

PATIENT
  Sex: Male

DRUGS (4)
  1. LANTUS SOLOSTAR [Suspect]
     Indication: TYPE 2 DIABETES MELLITUS
     Dosage: DOSE:18 UNIT(S)
     Route: 065
  2. METFORMIN [Suspect]
     Route: 065
  3. GLYBURIDE [Suspect]
     Route: 065
  4. SOLOSTAR [Concomitant]

REACTIONS (2)
  - Tremor [Unknown]
  - Weight increased [Unknown]
